FAERS Safety Report 7088424-8 (Version None)
Quarter: 2010Q4

REPORT INFORMATION
  Report Type: 
  Country: None (occurrence: None)
  Receive Date: 20101028
  Receipt Date: 20101019
  Transmission Date: 20110411
  Serious: No
  Sender: FDA-Public Use
  Company Number: S08-USA-00391-01

PATIENT
  Age: 74 Year
  Sex: Female

DRUGS (11)
  1. TIAZAC [Suspect]
     Indication: HYPERTENSION
     Dosage: 300 MG (300 MG, 1 IN 1 D), ORAL, 240 MG (240 MG, 1 IN 1 D), ORAL, 300 MG (300 MG, 1 IN 1 D), ORAL
     Route: 048
     Dates: start: 20050101
  2. LASIX [Concomitant]
  3. DIGOXIN [Concomitant]
  4. PLAVIX [Concomitant]
  5. POTASSIUM (POTASSIUM) (POTASSIUM) [Concomitant]
  6. LIPITOR (ATORVASTATIN CALCIUM) (ATORVASTATIN CALCIUM) [Concomitant]
  7. CELEBREX [Concomitant]
  8. XANAX [Concomitant]
  9. PERCOCET (OXYCODONE, ACETAMINOPHEN) (OXYCODONE, ACETAMINOPHEN) [Concomitant]
  10. OXYCODONE HCL [Concomitant]
  11. VITAMINS [Concomitant]

REACTIONS (4)
  - BUNION [None]
  - FATIGUE [None]
  - OEDEMA PERIPHERAL [None]
  - TOE AMPUTATION [None]
